FAERS Safety Report 16409919 (Version 1)
Quarter: 2019Q2

REPORT INFORMATION
  Report Type: Spontaneous
  Country: US (occurrence: US)
  Receive Date: 20190503
  Receipt Date: 20190503
  Transmission Date: 20190711
  Serious: No
  Sender: FDA-Public Use
  Company Number: None

PATIENT
  Age: 93 Year
  Sex: Female

DRUGS (1)
  1. ACITRETIN 25 MG CAPSULE #30^S [Suspect]
     Active Substance: ACITRETIN
     Indication: SQUAMOUS CELL CARCINOMA OF SKIN
     Route: 048
     Dates: start: 201902

REACTIONS (2)
  - Influenza [None]
  - Gastric disorder [None]
